FAERS Safety Report 7939226-9 (Version None)
Quarter: 2011Q4

REPORT INFORMATION
  Report Type: 
  Country: None (occurrence: None)
  Receive Date: 20111124
  Receipt Date: 20111114
  Transmission Date: 20120403
  Serious: Yes (Other)
  Sender: FDA-Public Use
  Company Number: DE-AMGEN-DEUSP2011052926

PATIENT
  Age: 71 Year

DRUGS (2)
  1. PROLIA [Suspect]
     Dosage: UNK
     Dates: start: 20110601
  2. PROLIA [Suspect]
     Indication: OSTEOPOROSIS
     Dosage: UNK
     Dates: start: 20101201

REACTIONS (1)
  - SARCOMA [None]
